FAERS Safety Report 25091127 (Version 1)
Quarter: 2025Q1

REPORT INFORMATION
  Report Type: Spontaneous
  Country: ID (occurrence: ID)
  Receive Date: 20250318
  Receipt Date: 20250318
  Transmission Date: 20250409
  Serious: Yes (Hospitalization, Other)
  Sender: PURDUE
  Company Number: ID-NAPPMUNDI-GBR-2025-0124166

PATIENT
  Age: 23 Year
  Sex: Female
  Weight: 43 kg

DRUGS (17)
  1. MORPHINE SULFATE [Suspect]
     Active Substance: MORPHINE SULFATE
     Indication: Cancer pain
     Dosage: 10 MILLIGRAM, Q12H
     Route: 048
  2. MORPHINE SULFATE [Suspect]
     Active Substance: MORPHINE SULFATE
     Route: 048
  3. MORPHINE SULFATE [Suspect]
     Active Substance: MORPHINE SULFATE
     Route: 048
  4. MORPHINE SULFATE [Suspect]
     Active Substance: MORPHINE SULFATE
     Route: 048
  5. MORPHINE SULFATE [Suspect]
     Active Substance: MORPHINE SULFATE
     Indication: Cancer pain
     Dosage: 10 MILLIGRAM, Q12H
     Route: 048
  6. MORPHINE SULFATE [Suspect]
     Active Substance: MORPHINE SULFATE
     Route: 048
  7. MORPHINE SULFATE [Suspect]
     Active Substance: MORPHINE SULFATE
     Route: 048
  8. MORPHINE SULFATE [Suspect]
     Active Substance: MORPHINE SULFATE
     Route: 048
  9. PREGABALIN [Suspect]
     Active Substance: PREGABALIN
     Indication: Neuralgia
     Route: 065
  10. AMITRIPTYLINE [Suspect]
     Active Substance: AMITRIPTYLINE
     Indication: Neuralgia
     Route: 065
  11. FENTANYL [Suspect]
     Active Substance: FENTANYL
     Indication: Pain
     Route: 042
  12. FENTANYL [Suspect]
     Active Substance: FENTANYL
     Route: 042
  13. ACETAMINOPHEN [Suspect]
     Active Substance: ACETAMINOPHEN
     Indication: Pain
     Dosage: 500 MILLIGRAM, Q8H
     Route: 065
  14. KETAMINE [Suspect]
     Active Substance: KETAMINE
     Indication: Pain
     Route: 042
  15. FENTANYL [Concomitant]
     Active Substance: FENTANYL
     Indication: Pain
     Route: 065
  16. TRAMADOL [Concomitant]
     Active Substance: TRAMADOL
     Indication: Pain
     Dosage: 100 MILLIGRAM, Q8H
     Route: 065
  17. KETOROLAC [Concomitant]
     Active Substance: KETOROLAC TROMETHAMINE
     Indication: Pain
     Route: 065

REACTIONS (10)
  - Respiratory depression [Unknown]
  - Oxygen saturation decreased [Recovered/Resolved]
  - Nausea [Recovered/Resolved]
  - Vomiting [Recovered/Resolved]
  - Pyrexia [Unknown]
  - Chills [Unknown]
  - Dehydration [Unknown]
  - Inadequate analgesia [Unknown]
  - Impaired quality of life [Unknown]
  - Drug resistance [Unknown]
